FAERS Safety Report 19320674 (Version 3)
Quarter: 2021Q2

REPORT INFORMATION
  Report Type: Report from Study
  Country: BR (occurrence: BR)
  Receive Date: 20210527
  Receipt Date: 20210603
  Transmission Date: 20210717
  Serious: Yes (Other)
  Sender: FDA-Public Use
  Company Number: BR-BIOGEN-2020BI00891430

PATIENT
  Age: 34 Year
  Sex: Female
  Weight: 69 kg

DRUGS (2)
  1. TYSABRI [Suspect]
     Active Substance: NATALIZUMAB
     Route: 042
     Dates: end: 20200105
  2. TYSABRI [Suspect]
     Active Substance: NATALIZUMAB
     Indication: MULTIPLE SCLEROSIS
     Route: 042
     Dates: start: 201312, end: 201912

REACTIONS (5)
  - Uterine hypertonus [Recovered/Resolved]
  - Labour pain [Recovered/Resolved]
  - Salivary hypersecretion [Unknown]
  - Maternal exposure during pregnancy [Not Recovered/Not Resolved]
  - Morning sickness [Recovered/Resolved]

NARRATIVE: CASE EVENT DATE: 20201015
